FAERS Safety Report 5285762-6 (Version None)
Quarter: 2007Q1

REPORT INFORMATION
  Report Type: 
  Country: None (occurrence: None)
  Receive Date: 20070128
  Receipt Date: 20061213
  Transmission Date: 20070707
  Serious: No
  Sender: FDA-Public Use
  Company Number: POMP-10911

PATIENT
  Age: 56 Year

DRUGS (1)
  1. MYOZYME [Suspect]
     Indication: GLYCOGEN STORAGE DISEASE TYPE II
     Dosage: 1500 MG Q2WKS IV
     Route: 042
     Dates: start: 20060922

REACTIONS (1)
  - INFECTION [None]
